FAERS Safety Report 25113306 (Version 2)
Quarter: 2025Q2

REPORT INFORMATION
  Report Type: Report from Study
  Country: US (occurrence: US)
  Receive Date: 20250324
  Receipt Date: 20250403
  Transmission Date: 20250716
  Serious: Yes (Hospitalization)
  Sender: ABBVIE
  Company Number: US-ABBVIE-6183589

PATIENT
  Age: 47 Year
  Sex: Female

DRUGS (1)
  1. RINVOQ [Suspect]
     Active Substance: UPADACITINIB
     Indication: Crohn^s disease
     Route: 048
     Dates: start: 20230701

REACTIONS (5)
  - Colitis [Unknown]
  - Cough [Recovering/Resolving]
  - Crohn^s disease [Recovering/Resolving]
  - Illness [Unknown]
  - Upper respiratory tract congestion [Recovering/Resolving]

NARRATIVE: CASE EVENT DATE: 20250201
